FAERS Safety Report 23477168 (Version 1)
Quarter: 2024Q1

REPORT INFORMATION
  Report Type: Report from Study
  Country: TH (occurrence: TH)
  Receive Date: 20240204
  Receipt Date: 20240204
  Transmission Date: 20240410
  Serious: No
  Sender: FDA-Public Use
  Company Number: TH-IPSEN Group, Research and Development-2023-20596

PATIENT
  Age: 75 Year
  Sex: Female

DRUGS (2)
  1. CABOMETYX [Suspect]
     Active Substance: CABOZANTINIB S-MALATE
     Indication: Renal cell carcinoma
     Dosage: 40MG ONCE DAILY
     Route: 048
     Dates: start: 20230308
  2. NIVOLUMAB [Suspect]
     Active Substance: NIVOLUMAB
     Indication: Renal cell carcinoma
     Dosage: UNKNOWN
     Route: 065
     Dates: start: 20230308

REACTIONS (2)
  - Blister [Unknown]
  - Skin exfoliation [Unknown]
